FAERS Safety Report 13037620 (Version 1)
Quarter: 2016Q4

REPORT INFORMATION
  Report Type: Report from Study
  Country: None (occurrence: NZ)
  Receive Date: 20161217
  Receipt Date: 20161217
  Transmission Date: 20170207
  Serious: Yes (Other)
  Sender: FDA-Public Use
  Company Number: NZ-ABBVIE-16K-118-1802164-00

PATIENT
  Sex: Male

DRUGS (1)
  1. HUMIRA [Suspect]
     Active Substance: ADALIMUMAB
     Indication: ANKYLOSING SPONDYLITIS
     Route: 058
     Dates: start: 20140120

REACTIONS (6)
  - Injection site pain [Unknown]
  - Depressed mood [Unknown]
  - Osteoarthritis [Unknown]
  - Nervousness [Unknown]
  - Anhedonia [Unknown]
  - Anxiety [Unknown]
